FAERS Safety Report 6507951-2 (Version None)
Quarter: 2009Q4

REPORT INFORMATION
  Report Type: 
  Country: None (occurrence: None)
  Receive Date: 20091221
  Receipt Date: 20091215
  Transmission Date: 20100525
  Serious: Yes (Hospitalization)
  Sender: FDA-Public Use
  Company Number: B0615559A

PATIENT
  Sex: Female

DRUGS (6)
  1. ZELITREX [Suspect]
     Indication: PROPHYLAXIS
     Dosage: 500MG TWICE PER DAY
     Route: 048
     Dates: start: 20090721, end: 20090808
  2. BACTRIM [Suspect]
     Indication: PROPHYLAXIS
     Dosage: 1TAB PER DAY
     Route: 048
     Dates: start: 20090721, end: 20090801
  3. LEUSTATIN [Concomitant]
     Route: 042
     Dates: start: 20090723, end: 20090727
  4. KARDEGIC [Concomitant]
     Indication: PROPHYLAXIS
     Dosage: 75MG PER DAY
     Route: 048
  5. BISOPROLOL [Concomitant]
     Dosage: 1TAB PER DAY
     Route: 048
  6. VASTAREL [Concomitant]
     Indication: ANGINA PECTORIS
     Dosage: 70MG PER DAY
     Route: 048

REACTIONS (25)
  - ANAEMIA MACROCYTIC [None]
  - ASTHENIA [None]
  - BLISTER [None]
  - BLOOD TRIGLYCERIDES INCREASED [None]
  - C-REACTIVE PROTEIN INCREASED [None]
  - CARDIOMEGALY [None]
  - CHEST X-RAY ABNORMAL [None]
  - CHOLESTASIS [None]
  - DECREASED APPETITE [None]
  - DERMATITIS EXFOLIATIVE [None]
  - DRUG RASH WITH EOSINOPHILIA AND SYSTEMIC SYMPTOMS [None]
  - EOSINOPHILIA [None]
  - FACE OEDEMA [None]
  - GENERAL PHYSICAL HEALTH DETERIORATION [None]
  - HISTIOCYTOSIS HAEMATOPHAGIC [None]
  - HYPOPROTEINAEMIA [None]
  - LYMPHOPENIA [None]
  - OEDEMA PERIPHERAL [None]
  - PRURITUS [None]
  - PYREXIA [None]
  - RASH MACULO-PAPULAR [None]
  - RASH MORBILLIFORM [None]
  - SERUM FERRITIN INCREASED [None]
  - TOXIC SKIN ERUPTION [None]
  - URTICARIA [None]
